FAERS Safety Report 12225767 (Version 5)
Quarter: 2016Q3

REPORT INFORMATION
  Report Type: Spontaneous
  Country: US (occurrence: US)
  Receive Date: 20160331
  Receipt Date: 20160805
  Transmission Date: 20161109
  Serious: Yes (Hospitalization, Other)
  Sender: FDA-Public Use
  Company Number: US-PFIZER INC-2016181228

PATIENT
  Age: 18 Year
  Sex: Male

DRUGS (1)
  1. SULFAMETHOXAZOLE/TRIMETHOPRIM PFIZER, INC. [Suspect]
     Active Substance: SULFAMETHOXAZOLE\TRIMETHOPRIM
     Indication: NAIL INFECTION
     Dosage: UNKNOWN DOSE, ALTERNATE DAY

REACTIONS (3)
  - Intentional product misuse [Unknown]
  - Psychotic disorder [Recovered/Resolved]
  - Intentional self-injury [Recovered/Resolved]
